FAERS Safety Report 9556859 (Version 2)
Quarter: 2013Q4

REPORT INFORMATION
  Report Type: Spontaneous
  Country: US (occurrence: US)
  Receive Date: 20130926
  Receipt Date: 20131022
  Transmission Date: 20140711
  Serious: No
  Sender: FDA-Public Use
  Company Number: US-PFIZER INC-2013275380

PATIENT
  Age: 51 Year
  Sex: Female

DRUGS (2)
  1. LYRICA [Suspect]
     Indication: FIBROMYALGIA
     Dosage: 200 MG, 2X/DAY
  2. METOPROLOL [Concomitant]
     Indication: HYPERTENSION
     Dosage: 50 MG, 2X/DAY

REACTIONS (9)
  - Bedridden [Recovered/Resolved]
  - Pain [Recovered/Resolved]
  - Grip strength decreased [Unknown]
  - Weight increased [Unknown]
  - Disturbance in attention [Unknown]
  - Speech disorder [Unknown]
  - Amnesia [Unknown]
  - Balance disorder [Unknown]
  - Dry mouth [Unknown]
